FAERS Safety Report 20809379 (Version 2)
Quarter: 2022Q2

REPORT INFORMATION
  Report Type: Spontaneous
  Country: US (occurrence: US)
  Receive Date: 20220510
  Receipt Date: 20220524
  Transmission Date: 20220721
  Serious: No
  Sender: FDA-Public Use
  Company Number: US-PFIZER INC-202200625630

PATIENT
  Age: 48 Year
  Sex: Female

DRUGS (1)
  1. IBRANCE [Suspect]
     Active Substance: PALBOCICLIB
     Indication: Breast cancer female
     Dosage: 125 MG, 1X/DAY
     Dates: start: 20220419, end: 20220513

REACTIONS (8)
  - Dry eye [Unknown]
  - Nausea [Recovered/Resolved]
  - Pain in extremity [Unknown]
  - Myalgia [Unknown]
  - Back pain [Unknown]
  - Paraesthesia [Unknown]
  - Erythema [Unknown]
  - Disease progression [Unknown]

NARRATIVE: CASE EVENT DATE: 20220401
